FAERS Safety Report 10239749 (Version 1)
Quarter: 2014Q2

REPORT INFORMATION
  Report Type: Spontaneous
  Country: US (occurrence: None)
  Receive Date: 20140612
  Receipt Date: 20140612
  Transmission Date: 20141212
  Serious: Yes (Other)
  Sender: FDA-Public Use
  Company Number: 001745391A

PATIENT
  Age: 63 Year
  Sex: Female

DRUGS (3)
  1. MEANINGFUL BEAUTY ANTIOXIDANT DAY CREME W/SPF 20 [Suspect]
     Dosage: TWICE DAILY DERMAL
     Dates: start: 20140310, end: 20140501
  2. MEANINGFUL BEAUTY SKIN BRIGHTENING DECOLLETE AND NECK TREATMENT WITH SPF 15 [Suspect]
     Dosage: TWICE DAILY DERMAL?
     Dates: start: 20140310, end: 20140501
  3. ESTROGEN [Concomitant]

REACTIONS (2)
  - Urticaria [None]
  - Rash [None]
